FAERS Safety Report 4707935-0 (Version None)
Quarter: 2005Q3

REPORT INFORMATION
  Report Type: 
  Country: None (occurrence: None)
  Receive Date: 20050705
  Receipt Date: 20050705
  Transmission Date: 20060218
  Serious: Yes (Death)
  Sender: FDA-Public Use
  Company Number: None

PATIENT
  Age: 50 Year
  Sex: Female
  Weight: 56.6996 kg

DRUGS (2)
  1. AMITRIPTYLINE    50MG  3X AT BEDTIME [Suspect]
     Indication: INSOMNIA
     Dosage: 3 TABS @BEDT   ORAL
     Route: 048
     Dates: start: 20050602, end: 20051102
  2. LEXAPRO [Suspect]
     Indication: MOOD SWINGS
     Dosage: 1 DAILY   ORAL
     Route: 048
     Dates: start: 20050602, end: 20051102

REACTIONS (2)
  - COMPLETED SUICIDE [None]
  - OVERDOSE [None]
